FAERS Safety Report 17689009 (Version 2)
Quarter: 2025Q4

REPORT INFORMATION
  Report Type: Spontaneous
  Country: US (occurrence: US)
  Receive Date: 20200421
  Receipt Date: 20251006
  Transmission Date: 20260119
  Serious: No
  Sender: VERTEX
  Company Number: US-VERTEX PHARMACEUTICALS-2020-008955

PATIENT
  Sex: Male
  Weight: 30 kg

DRUGS (1)
  1. SYMDEKO [Suspect]
     Active Substance: IVACAFTOR\TEZACAFTOR
     Indication: Cystic fibrosis
     Dosage: 50 MG TEZACAFTOR/75MG IVACAFTOR; 75MG IVACAFTOR , BID
     Route: 048
     Dates: start: 20190822, end: 20210705

REACTIONS (2)
  - Dyspnoea [Unknown]
  - Product dose omission issue [Recovered/Resolved]

NARRATIVE: CASE EVENT DATE: 20200101
